FAERS Safety Report 18540072 (Version 1)
Quarter: 2020Q4

REPORT INFORMATION
  Report Type: Spontaneous
  Country: US (occurrence: US)
  Receive Date: 20201124
  Receipt Date: 20201124
  Transmission Date: 20210114
  Serious: Yes (Death)
  Sender: FDA-Public Use
  Company Number: None

PATIENT
  Age: 56 Year
  Sex: Female

DRUGS (16)
  1. VICTOZA [Concomitant]
     Active Substance: LIRAGLUTIDE
  2. NOVOLOG [Concomitant]
     Active Substance: INSULIN ASPART
  3. AMILORIDE [Concomitant]
     Active Substance: AMILORIDE
  4. XALKORI [Suspect]
     Active Substance: CRIZOTINIB
     Indication: LUNG NEOPLASM MALIGNANT
     Route: 048
     Dates: start: 20201111
  5. LEVOTHYROXINE. [Concomitant]
     Active Substance: LEVOTHYROXINE
  6. PREDNISONE. [Concomitant]
     Active Substance: PREDNISONE
  7. LORAZEPAM. [Concomitant]
     Active Substance: LORAZEPAM
  8. BACTRIM [Concomitant]
     Active Substance: SULFAMETHOXAZOLE\TRIMETHOPRIM
  9. DULOXETINE. [Concomitant]
     Active Substance: DULOXETINE
  10. ROSUVASTATIN. [Concomitant]
     Active Substance: ROSUVASTATIN
  11. DAPSONE. [Concomitant]
     Active Substance: DAPSONE
  12. PIOGLITAZONE. [Concomitant]
     Active Substance: PIOGLITAZONE
  13. PANTOPRAZOLE [Concomitant]
     Active Substance: PANTOPRAZOLE
  14. INVOKANA [Concomitant]
     Active Substance: CANAGLIFLOZIN
  15. BENAZEPRIL [Concomitant]
     Active Substance: BENAZEPRIL HYDROCHLORIDE
  16. HUMALOG [Concomitant]
     Active Substance: INSULIN LISPRO

REACTIONS (1)
  - Death [None]

NARRATIVE: CASE EVENT DATE: 20201115
